FAERS Safety Report 9549613 (Version 3)
Quarter: 2013Q4

REPORT INFORMATION
  Report Type: Report from Study
  Country: JP (occurrence: JP)
  Receive Date: 20130924
  Receipt Date: 20131114
  Transmission Date: 20140711
  Serious: Yes (Other)
  Sender: FDA-Public Use
  Company Number: JP-OTSUKA-JP-2013-13950

PATIENT
  Age: 74 Year
  Sex: Male
  Weight: 57.9 kg

DRUGS (19)
  1. SAMSCA [Suspect]
     Indication: FLUID RETENTION
     Dosage: 7.5 MG MILLIGRAM(S), QAM
     Route: 048
     Dates: start: 20130903, end: 20130903
  2. SAMSCA [Suspect]
     Dosage: 15 MG MILLIGRAM(S), QAM
     Route: 048
     Dates: start: 20130904, end: 20130905
  3. ZYLORIC [Concomitant]
     Dosage: 100 MG MILLIGRAM(S), DAILY DOSE
     Route: 048
  4. ARTIST [Concomitant]
     Indication: CARDIAC FAILURE
     Dosage: 10 MG MILLIGRAM(S), DAILY DOSE
     Route: 048
  5. RENIVACE [Concomitant]
     Indication: CARDIAC FAILURE
     Dosage: 5 MG MILLIGRAM(S), DAILY DOSE
     Route: 048
  6. LASIX [Concomitant]
     Indication: CARDIAC FAILURE
     Dosage: 240 MG MILLIGRAM(S), DAILY DOSE
     Route: 048
  7. GASTER [Concomitant]
     Dosage: 20 MG MILLIGRAM(S), DAILY DOSE
     Route: 048
  8. LUPRAC [Concomitant]
     Indication: CARDIAC FAILURE
     Dosage: 8 MG MILLIGRAM(S), DAILY DOSE
     Route: 048
  9. LANIRAPID [Concomitant]
     Indication: CARDIAC FAILURE
     Dosage: 0.05 MG MILLIGRAM(S), DAILY DOSE
     Route: 048
  10. ALDACTONE A [Concomitant]
     Indication: CARDIAC FAILURE
     Dosage: 12.5 MG MILLIGRAM(S), DAILY DOSE
     Route: 048
  11. WARFARIN K [Concomitant]
     Indication: CARDIAC FAILURE
     Dosage: 1 MG MILLIGRAM(S), DAILY DOSE
     Route: 048
  12. MAGNESIUM OXIDE [Concomitant]
     Dosage: 990 MG MILLIGRAM(S), DAILY DOSE
     Route: 048
  13. NATRIX [Concomitant]
     Indication: CARDIAC FAILURE
     Dosage: 0.5 MG MILLIGRAM(S), DAILY DOSE
     Route: 048
  14. TRAZENTA [Concomitant]
     Dosage: 5 MG MILLIGRAM(S), DAILY DOSE
     Route: 048
  15. APIDRA [Concomitant]
     Dosage: 34 IU, DAILY DOSE
     Route: 058
     Dates: end: 20130902
  16. APIDRA [Concomitant]
     Dosage: 28 IU, DAILY DOSE
     Route: 058
     Dates: start: 20130903
  17. LANTUS [Concomitant]
     Dosage: 20 IU, DAILY DOSE
     Route: 058
     Dates: end: 20130902
  18. LANTUS [Concomitant]
     Dosage: 12 IU, DAILY DOSE
     Route: 058
     Dates: start: 20130903, end: 20130903
  19. LANTUS [Concomitant]
     Dosage: 6 IU, DAILY DOSE
     Route: 058
     Dates: start: 20130904

REACTIONS (2)
  - Blood urea increased [Recovering/Resolving]
  - White blood cell count increased [Recovering/Resolving]
